FAERS Safety Report 7374534-4 (Version None)
Quarter: 2011Q1

REPORT INFORMATION
  Report Type: 
  Country: None (occurrence: None)
  Receive Date: 20110325
  Receipt Date: 20100222
  Transmission Date: 20110831
  Serious: No
  Sender: FDA-Public Use
  Company Number: US-MYLANLABS-2010S1002977

PATIENT
  Age: 45 Year
  Sex: Female
  Weight: 122.47 kg

DRUGS (4)
  1. RELAFEN [Concomitant]
  2. WELLBUTRIN [Concomitant]
  3. FENTANYL-100 [Suspect]
     Indication: FIBROMYALGIA
     Dosage: Q 72 HOURS
     Route: 062
     Dates: start: 20100215
  4. SKELAXIN [Concomitant]

REACTIONS (3)
  - FEELING HOT [None]
  - DIZZINESS [None]
  - HEADACHE [None]
